FAERS Safety Report 8157058-6 (Version None)
Quarter: 2012Q1

REPORT INFORMATION
  Report Type: 
  Country: None (occurrence: None)
  Receive Date: 20120222
  Receipt Date: 20120216
  Transmission Date: 20120608
  Serious: Yes (Other)
  Sender: FDA-Public Use
  Company Number: US-B.I. PHARMACEUTICALS,INC./RIDGEFIELD-2012-BP-03128BP

PATIENT
  Age: 60 Year
  Sex: Male

DRUGS (1)
  1. FLOMAX [Suspect]
     Indication: BENIGN PROSTATIC HYPERPLASIA
     Dosage: 0.4 MG
     Route: 048
     Dates: start: 20090101

REACTIONS (10)
  - HAEMOPHILUS INFECTION [None]
  - PAIN [None]
  - ANXIETY [None]
  - DYSPHAGIA [None]
  - POLLAKIURIA [None]
  - RADIATION INJURY [None]
  - THROAT CANCER [None]
  - PNEUMONIA [None]
  - HYPOTENSION [None]
  - ABNORMAL LOSS OF WEIGHT [None]
